FAERS Safety Report 16390609 (Version 2)
Quarter: 2020Q1

REPORT INFORMATION
  Report Type: Spontaneous
  Country: DE (occurrence: DE)
  Receive Date: 20190604
  Receipt Date: 20200312
  Transmission Date: 20200409
  Serious: Yes (Other)
  Sender: FDA-Public Use
  Company Number: DE-AKCEA THERAPEUTICS-2019IS001555

PATIENT

DRUGS (1)
  1. TEGSEDI [Suspect]
     Active Substance: INOTERSEN SODIUM
     Indication: AMYLOIDOSIS
     Dosage: UNK
     Route: 058
     Dates: start: 20181101

REACTIONS (8)
  - Nausea [Unknown]
  - Syncope [Unknown]
  - Headache [Unknown]
  - Injection site pain [Unknown]
  - Vomiting [Unknown]
  - Chills [Unknown]
  - Impaired work ability [Unknown]
  - Hypotension [Unknown]

NARRATIVE: CASE EVENT DATE: 20181101
